FAERS Safety Report 5329999-6 (Version None)
Quarter: 2007Q2

REPORT INFORMATION
  Report Type: 
  Country: None (occurrence: None)
  Receive Date: 20070521
  Receipt Date: 20070510
  Transmission Date: 20071010
  Serious: Yes (Congenital Anomaly)
  Sender: FDA-Public Use
  Company Number: B0462946A

PATIENT
  Age: 22 Year
  Sex: Female
  Weight: 74 kg

DRUGS (3)
  1. PIRITON [Suspect]
     Dosage: 4MG SEE DOSAGE TEXT
     Route: 048
     Dates: start: 20070213, end: 20070307
  2. FERROUS SULFATE TAB [Concomitant]
     Dosage: 200MG THREE TIMES PER DAY
     Route: 048
     Dates: start: 20070222, end: 20070306
  3. AQUEOUS CREAM [Concomitant]

REACTIONS (3)
  - DRUG EXPOSURE DURING PREGNANCY [None]
  - STILLBIRTH [None]
  - YELLOW SKIN [None]
